FAERS Safety Report 11375746 (Version 4)
Quarter: 2016Q1

REPORT INFORMATION
  Report Type: Spontaneous
  Country: MY (occurrence: MY)
  Receive Date: 20150813
  Receipt Date: 20160317
  Transmission Date: 20160525
  Serious: Yes (Hospitalization, Other)
  Sender: FDA-Public Use
  Company Number: MY-GLAXOSMITHKLINE INC.-MY2015GSK113673

PATIENT
  Age: 29 Year
  Sex: Female
  Weight: 76 kg

DRUGS (7)
  1. BELIMUMAB [Suspect]
     Active Substance: BELIMUMAB
     Indication: SYSTEMIC LUPUS ERYTHEMATOSUS
     Dosage: 840 MG, UNK
     Route: 042
     Dates: start: 20141222, end: 20150622
  2. FERROUS FUMARATE [Concomitant]
     Active Substance: FERROUS FUMARATE
     Dosage: 400 MG, BID
  3. PREDNISOLONE. [Concomitant]
     Active Substance: PREDNISOLONE
     Indication: SYSTEMIC LUPUS ERYTHEMATOSUS
     Dosage: 13 MG, 1D
     Route: 048
     Dates: start: 20150323
  4. PERINDOPRIL [Concomitant]
     Active Substance: PERINDOPRIL
     Indication: LUPUS NEPHRITIS
     Dosage: 4 MG, 1D
     Route: 048
     Dates: start: 20150525
  5. HYDROXYCHLOROQUINE [Concomitant]
     Active Substance: HYDROXYCHLOROQUINE
     Indication: SYSTEMIC LUPUS ERYTHEMATOSUS
     Dosage: 200 MG, 1D
     Route: 048
     Dates: start: 20030301
  6. MYCOPHENOLATE [Concomitant]
     Active Substance: MYCOPHENOLIC ACID
     Dosage: 1 G, BID
  7. FLECAINIDE [Concomitant]
     Active Substance: FLECAINIDE
     Indication: WOLFF-PARKINSON-WHITE SYNDROME

REACTIONS (3)
  - Atrial fibrillation [Not Recovered/Not Resolved]
  - Ventricular tachycardia [Not Recovered/Not Resolved]
  - Pain [Recovered/Resolved]

NARRATIVE: CASE EVENT DATE: 20150606
